FAERS Safety Report 15806589 (Version 1)
Quarter: 2019Q1

REPORT INFORMATION
  Report Type: Spontaneous
  Country: US (occurrence: US)
  Receive Date: 20190110
  Receipt Date: 20190110
  Transmission Date: 20190417
  Serious: No
  Sender: FDA-Public Use
  Company Number: US-PFIZER INC-2019009468

PATIENT
  Age: 56 Year
  Sex: Male
  Weight: 103 kg

DRUGS (5)
  1. LYRICA [Suspect]
     Active Substance: PREGABALIN
     Indication: NEUROPATHY PERIPHERAL
     Dosage: 75 MG, 3X/DAY
     Route: 048
     Dates: start: 201707
  2. LORAZEPAM. [Concomitant]
     Active Substance: LORAZEPAM
     Indication: SLEEP DISORDER
     Dosage: 1 DF (1 TABLET BY MOUTH AT BEDTIME), AS NEEDED
     Route: 048
     Dates: start: 2018
  3. CYMBALTA [Concomitant]
     Active Substance: DULOXETINE HYDROCHLORIDE
     Indication: NEUROPATHY PERIPHERAL
     Dosage: 30 MG, 1X/DAY
     Route: 048
     Dates: start: 201810
  4. ALBUTEROL HFA [Concomitant]
     Active Substance: ALBUTEROL SULFATE
     Indication: ASTHMA PROPHYLAXIS
     Dosage: 2 DF, (2 PUFFS BY MOUTH) AS NEEDED
     Route: 055
     Dates: start: 201705
  5. BEVESPI AEROSPHERE [Concomitant]
     Active Substance: FORMOTEROL FUMARATE\GLYCOPYRROLATE
     Indication: LUNG DISORDER
     Dosage: 2 DF (2 PUFFS BY MOUTH), 2X/DAY (IN THE MORNING AND BEDTIME)
     Route: 055
     Dates: start: 201708

REACTIONS (2)
  - Sleep disorder [Unknown]
  - Drug ineffective for unapproved indication [Unknown]

NARRATIVE: CASE EVENT DATE: 201707
